FAERS Safety Report 14708668 (Version 1)
Quarter: 2018Q2

REPORT INFORMATION
  Report Type: Spontaneous
  Country: FR (occurrence: FR)
  Receive Date: 20180403
  Receipt Date: 20180403
  Transmission Date: 20180711
  Serious: Yes (Other)
  Sender: FDA-Public Use
  Company Number: FR-BAYER-2018-057964

PATIENT
  Age: 70 Year
  Sex: Male

DRUGS (1)
  1. ASPIRINE PROTECT 100 MG [Suspect]
     Active Substance: ASPIRIN
     Dosage: UNK
     Dates: start: 2017

REACTIONS (4)
  - Acidosis [None]
  - Vitreous detachment [None]
  - Visual impairment [None]
  - Drug hypersensitivity [None]
